FAERS Safety Report 21806208 (Version 1)
Quarter: 2023Q1

REPORT INFORMATION
  Report Type: Spontaneous
  Country: US (occurrence: US)
  Receive Date: 20230102
  Receipt Date: 20230102
  Transmission Date: 20230418
  Serious: No
  Sender: FDA-Public Use
  Company Number: US-BRISTOL-MYERS SQUIBB COMPANY-2023-000055

PATIENT
  Age: 72 Year
  Sex: Male
  Weight: 94.80 kg

DRUGS (1)
  1. REVLIMID [Suspect]
     Active Substance: LENALIDOMIDE
     Indication: Plasma cell myeloma
     Dosage: FREQUENCY: 21D EVERY 28DAYS
     Route: 048
     Dates: start: 20220801

REACTIONS (2)
  - Diarrhoea [Recovering/Resolving]
  - Creatinine renal clearance increased [Recovering/Resolving]
